FAERS Safety Report 7003869-X (Version None)
Quarter: 2010Q3

REPORT INFORMATION
  Report Type: 
  Country: None (occurrence: None)
  Receive Date: 20100920
  Receipt Date: 20091216
  Transmission Date: 20110219
  Serious: No
  Sender: FDA-Public Use
  Company Number: US-WYE-H12681709

PATIENT
  Age: 40 Year
  Sex: Female
  Weight: 86.26 kg

DRUGS (4)
  1. PRISTIQ [Suspect]
     Indication: DEPRESSION
     Route: 048
     Dates: start: 20091215
  2. SPECTRUM [Concomitant]
  3. PEPCID [Concomitant]
  4. VESICARE [Concomitant]

REACTIONS (9)
  - ANXIETY [None]
  - ASTHENOPIA [None]
  - DECREASED APPETITE [None]
  - DRY MOUTH [None]
  - HEADACHE [None]
  - PALPITATIONS [None]
  - POOR QUALITY SLEEP [None]
  - THERAPEUTIC RESPONSE UNEXPECTED [None]
  - VISION BLURRED [None]
